FAERS Safety Report 6098509-0 (Version None)
Quarter: 2009Q1

REPORT INFORMATION
  Report Type: 
  Country: None (occurrence: None)
  Receive Date: 20090302
  Receipt Date: 20090224
  Transmission Date: 20090719
  Serious: Yes (Hospitalization)
  Sender: FDA-Public Use
  Company Number: JP-ASTRAZENECA-2009AP01548

PATIENT
  Age: 80 Year
  Sex: Male

DRUGS (6)
  1. CASODEX [Suspect]
     Indication: PROSTATE CANCER
     Route: 048
     Dates: start: 20081101, end: 20090223
  2. LEUPROLIDE ACETATE [Suspect]
     Indication: PROSTATE CANCER
     Dosage: DOSE UNKNOWN
     Route: 058
     Dates: start: 20090101, end: 20090223
  3. OPALMON [Suspect]
     Dosage: DOSE UNKNOWN
     Route: 048
     Dates: start: 20081101, end: 20090223
  4. SHAKUYAKU-KANZO-TO [Suspect]
     Dosage: DOSE UNKNOWN
     Route: 048
     Dates: start: 20081101, end: 20090223
  5. PREMINENT [Concomitant]
     Dosage: DOSE UNKNOWN
     Route: 048
     Dates: start: 20080301
  6. NORVASC [Concomitant]
     Dosage: DOSE UNKNOWN
     Route: 048
     Dates: start: 20080301

REACTIONS (3)
  - BLOOD CREATINE PHOSPHOKINASE INCREASED [None]
  - HEPATIC FUNCTION ABNORMAL [None]
  - HYPOKALAEMIA [None]
